FAERS Safety Report 8600105-5 (Version None)
Quarter: 2012Q3

REPORT INFORMATION
  Report Type: 
  Country: None (occurrence: None)
  Receive Date: 20120816
  Receipt Date: 20120809
  Transmission Date: 20120928
  Serious: Yes (Death, Other)
  Sender: FDA-Public Use
  Company Number: BR-AMGEN-BRASP2012003825

PATIENT
  Age: 30 Year
  Sex: Male
  Weight: 106 kg

DRUGS (10)
  1. ENBREL [Interacting]
     Indication: RHEUMATOID ARTHRITIS
     Dosage: 50 MG, 1X/WEEK
     Route: 058
     Dates: start: 20101101, end: 20120301
  2. CEPHALEXIN [Suspect]
     Indication: FURUNCLE
     Dosage: UNK, EVERY 6 HOURS
  3. ENBREL [Interacting]
     Dosage: 50 MG, 1X/WEEK
     Route: 058
     Dates: start: 20111101
  4. PREDNISOLONE [Concomitant]
     Dosage: 5 MG, 2X/DAY
  5. ENBREL [Interacting]
  6. METHOTREXATE [Concomitant]
     Dosage: 6 TABLETS OF 0.25MG (1.5 MG), WEEKLY
  7. CEPHALEXIN [Suspect]
     Dosage: UNK, 4X/DAY
  8. FOLIC ACID [Concomitant]
     Dosage: UNK, 2 OR 3 TABLETS WEEKLY
  9. AZITHROMYCIN [Concomitant]
     Dosage: UNK, FOR 7 DAYS
  10. ENBREL [Interacting]
     Dosage: UNK, POWDER AND SOLVENT FOR SOLUTION FOR INJECTION
     Dates: start: 20101101, end: 20111101

REACTIONS (13)
  - ALCOHOL INTERACTION [None]
  - HEPATIC INFECTION [None]
  - DECREASED APPETITE [None]
  - ABDOMINAL PAIN [None]
  - GASTRIC DISORDER [None]
  - PYREXIA [None]
  - CHOLELITHIASIS [None]
  - SEPSIS [None]
  - PAIN [None]
  - PHLEBITIS [None]
  - IMMUNODEFICIENCY [None]
  - FURUNCLE [None]
  - KIDNEY INFECTION [None]
